FAERS Safety Report 18229059 (Version 3)
Quarter: 2020Q4

REPORT INFORMATION
  Report Type: Report from Study
  Country: AU (occurrence: AU)
  Receive Date: 20200903
  Receipt Date: 20201008
  Transmission Date: 20210113
  Serious: Yes (Other)
  Sender: FDA-Public Use
  Company Number: AU-VERTEX PHARMACEUTICALS-2020-017593

PATIENT
  Age: 35 Year
  Sex: Female
  Weight: 61 kg

DRUGS (27)
  1. SODIUM CHLORIDE. [Concomitant]
     Active Substance: SODIUM CHLORIDE
     Indication: CYSTIC FIBROSIS LUNG
     Dosage: 4 MILLILITER
     Route: 055
     Dates: start: 2017
  2. VX-445/VX-661/VX-770 [Suspect]
     Active Substance: ELEXACAFTOR\IVACAFTOR\TEZACAFTOR
     Indication: CYSTIC FIBROSIS
     Dosage: UNK
     Route: 048
     Dates: start: 20191216
  3. MELOXICAM. [Concomitant]
     Active Substance: MELOXICAM
     Indication: ARTHRALGIA
     Dosage: 7.5 MG, PRN
     Route: 048
     Dates: start: 20200624
  4. DICLOFENAC [Concomitant]
     Active Substance: DICLOFENAC
     Indication: MUSCULOSKELETAL PAIN
     Dosage: 25 MG, PRN
     Route: 048
     Dates: start: 2012
  5. MERSYNDOL [CODEINE PHOSPHATE;DOXYLAMINE SUCCINATE;PARACETAMOL] [Concomitant]
     Dosage: UNK
  6. CREON [Concomitant]
     Active Substance: PANCRELIPASE AMYLASE\PANCRELIPASE LIPASE\PANCRELIPASE PROTEASE
     Indication: PANCREATIC FAILURE
     Dosage: 12-15 CAPS
     Route: 048
     Dates: start: 2020
  7. LORATADINE. [Concomitant]
     Active Substance: LORATADINE
     Indication: SEASONAL ALLERGY
     Dosage: 10 MG, PRN
     Route: 048
     Dates: start: 1998
  8. SALT [Concomitant]
     Active Substance: SODIUM CHLORIDE
     Dosage: 2 DOSAGE FORM, BID
     Route: 048
     Dates: start: 20200601
  9. PARACETAMOL + CAFFEINE [Concomitant]
     Active Substance: ACETAMINOPHEN\CAFFEINE
     Indication: MUSCULOSKELETAL PAIN
     Dosage: 500 MG, PRN
     Route: 048
     Dates: start: 2010
  10. RANITIDINE. [Concomitant]
     Active Substance: RANITIDINE
     Indication: GASTROOESOPHAGEAL REFLUX DISEASE
     Dosage: 150 MG, BID
     Route: 048
     Dates: start: 2004
  11. VENTOLIN [Concomitant]
     Active Substance: ALBUTEROL SULFATE
     Indication: CYSTIC FIBROSIS LUNG
     Dosage: 100 MICROGRAM, PRN
     Route: 055
     Dates: start: 1990
  12. VITAMIN A [RETINOL] [Concomitant]
     Active Substance: RETINOL
     Indication: VITAMIN SUPPLEMENTATION
     Dosage: 1 DOSAGE FORM, QD
     Route: 048
     Dates: start: 1998
  13. PLAQUENIL [HYDROXYCHLOROQUINE PHOSPHATE] [Concomitant]
     Active Substance: HYDROXYCHLOROQUINE DIPHOSPHATE
     Indication: ARTHRALGIA
     Dosage: 200 MG, QD
     Route: 048
     Dates: start: 20200624
  14. MOVICOL PLAIN [Concomitant]
     Active Substance: POLYETHYLENE GLYCOL 3350\POTASSIUM CHLORIDE\SODIUM BICARBONATE\SODIUM CHLORIDE
     Dosage: 1 DOSAGE FORM, PRN
     Route: 048
     Dates: start: 2020
  15. VITAMIN E [Concomitant]
     Active Substance: .ALPHA.-TOCOPHEROL
     Indication: VITAMIN SUPPLEMENTATION
     Dosage: 1 DOSAGE FORM, BID
     Route: 048
     Dates: start: 1998
  16. BECONASE AQ [Concomitant]
     Active Substance: BECLOMETHASONE DIPROPIONATE MONOHYDRATE
     Indication: SINUS DISORDER
     Dosage: 50 MICROGRAM
     Route: 045
     Dates: start: 2005
  17. SODIUM CHLORIDE. [Concomitant]
     Active Substance: SODIUM CHLORIDE
     Indication: SINUS DISORDER
     Dosage: UNK, PRN
     Route: 045
     Dates: start: 2015
  18. GLUCOLYTE [GLUCOSE;POTASSIUM CHLORIDE;SODIUM CHLORIDE] [Concomitant]
     Indication: ELECTROLYTE SUBSTITUTION THERAPY
     Dosage: 1 DOSAGE FORM, BID
     Route: 048
     Dates: start: 20200508
  19. TOBI [Concomitant]
     Active Substance: TOBRAMYCIN
     Indication: SINUSITIS
     Dosage: 300 MG, BID
     Route: 045
     Dates: start: 20200506
  20. PLAQUENIL [HYDROXYCHLOROQUINE PHOSPHATE] [Concomitant]
     Active Substance: HYDROXYCHLOROQUINE DIPHOSPHATE
     Dosage: 400 MG, QD
     Route: 048
  21. COLOXYL WITH SENNA [Concomitant]
     Active Substance: DOCUSATE SODIUM\SENNOSIDES A AND B
     Dosage: 50 MG, PRN
     Route: 048
     Dates: start: 2015
  22. PROMETHAZINE [Concomitant]
     Active Substance: PROMETHAZINE HYDROCHLORIDE
     Indication: SEASONAL ALLERGY
     Dosage: 25 MG, PRN
     Route: 048
     Dates: start: 2004
  23. PULMOZYME [Concomitant]
     Active Substance: DORNASE ALFA
     Indication: CYSTIC FIBROSIS LUNG
     Dosage: 2.5 MG, QD
     Route: 055
     Dates: start: 1998
  24. VENTOLIN [Concomitant]
     Active Substance: ALBUTEROL SULFATE
     Dosage: 5 MG, BID
     Route: 055
     Dates: start: 1990
  25. DOXYLAMINE [Concomitant]
     Active Substance: DOXYLAMINE
     Indication: SEASONAL ALLERGY
     Dosage: 25 MG, PRN
     Route: 048
     Dates: start: 201707
  26. MERSYNDOL [CODEINE PHOSPHATE;DOXYLAMINE SUCCINATE;PARACETAMOL] [Concomitant]
     Indication: MUSCULOSKELETAL PAIN
     Dosage: 450 MG, PRN
     Route: 048
     Dates: start: 2014
  27. PANTOPRAZOLE [Concomitant]
     Active Substance: PANTOPRAZOLE
     Indication: GASTROOESOPHAGEAL REFLUX DISEASE
     Dosage: 40 MG, QD
     Route: 048
     Dates: start: 2004

REACTIONS (1)
  - Anxiety [Not Recovered/Not Resolved]

NARRATIVE: CASE EVENT DATE: 20200827
